FAERS Safety Report 21296716 (Version 1)
Quarter: 2022Q3

REPORT INFORMATION
  Report Type: Spontaneous
  Country: US (occurrence: None)
  Receive Date: 20220902
  Receipt Date: 20220902
  Transmission Date: 20221027
  Serious: Yes (Other)
  Sender: FDA-Public Use
  Company Number: None

PATIENT
  Sex: Female

DRUGS (11)
  1. TREMFYA [Suspect]
     Active Substance: GUSELKUMAB
     Indication: Psoriasis
     Dosage: OTHER FREQUENCY : EVERY 8 WEEKS;?
     Route: 058
     Dates: start: 20210805
  2. ALPRAZOLAM TAB [Concomitant]
  3. ASPIRIN TAB EC [Concomitant]
  4. IRBESARTAN [Concomitant]
     Active Substance: IRBESARTAN
  5. LEVOTHYROXIN TAB [Concomitant]
  6. MECLIZINE TAB [Concomitant]
  7. OMEPRAZOLE SODIUM [Concomitant]
     Active Substance: OMEPRAZOLE SODIUM
  8. ROSUVASTATIN [Concomitant]
     Active Substance: ROSUVASTATIN
  9. VERAPAMIL TAB ER [Concomitant]
  10. VITAMIN B12 [Concomitant]
     Active Substance: CYANOCOBALAMIN
  11. VITAMIN D3 CAP [Concomitant]

REACTIONS (1)
  - Thyroid cancer [None]
